FAERS Safety Report 6631298-7 (Version None)
Quarter: 2010Q1

REPORT INFORMATION
  Report Type: 
  Country: None (occurrence: None)
  Receive Date: 20100312
  Receipt Date: 20100226
  Transmission Date: 20100710
  Serious: Yes (Other)
  Sender: FDA-Public Use
  Company Number: US-RANBAXY-2010RR-32179

PATIENT
  Age: 33 Year
  Sex: Female

DRUGS (6)
  1. DOXYCYCLINE HCL [Suspect]
     Indication: PROPHYLAXIS
     Dosage: 100 MG, UNK
  2. WARFARIN [Suspect]
     Dosage: 38.5 MG, 1/WEEK
  3. WARFARIN [Suspect]
     Dosage: 55.5 MG, UNK
  4. WARFARIN [Suspect]
     Dosage: 53.5 MG, 1/WEEK
  5. ETHINYL ESTRADIOL AND NORETHINDRONE [Suspect]
     Indication: CONTRACEPTION
     Dosage: 1.02 MG, UNK
     Route: 048
  6. NORETHISTERONE [Suspect]
     Indication: CONTRACEPTION
     Dosage: 0.35 MG, UNK
     Route: 048

REACTIONS (3)
  - DRUG INTERACTION [None]
  - INTERNATIONAL NORMALISED RATIO INCREASED [None]
  - VAGINAL HAEMORRHAGE [None]
